FAERS Safety Report 9059143 (Version 1)
Quarter: 2013Q1

REPORT INFORMATION
  Report Type: Spontaneous
  Country: US (occurrence: US)
  Receive Date: 20130211
  Receipt Date: 20130211
  Transmission Date: 20140127
  Serious: No
  Sender: FDA-Public Use
  Company Number: US-BRISTOL-MYERS SQUIBB COMPANY-17026899

PATIENT
  Age: 58 Year
  Sex: Male

DRUGS (2)
  1. GLUCOPHAGE [Suspect]
  2. METFORMIN HCL [Suspect]

REACTIONS (2)
  - Sluggishness [Unknown]
  - Product quality issue [Unknown]
